FAERS Safety Report 14026391 (Version 2)
Quarter: 2017Q4

REPORT INFORMATION
  Report Type: Other
  Country: CA (occurrence: CA)
  Receive Date: 20170929
  Receipt Date: 20171027
  Transmission Date: 20180321
  Serious: Yes (Other)
  Sender: FDA-Public Use
  Company Number: CA-APOTEX-2017AP018878

PATIENT
  Age: 37 Year
  Sex: Female

DRUGS (3)
  1. EPIVAL                             /00017001/ [Concomitant]
     Active Substance: DIAZEPAM
     Indication: PRODUCT USED FOR UNKNOWN INDICATION
     Dosage: UNK
     Route: 065
  2. APO-LEVETIRACETAM [Suspect]
     Active Substance: LEVETIRACETAM
     Indication: SEIZURE
     Dosage: 750 MG, BID
     Route: 065
  3. APO-LAMOTRIGINE [Suspect]
     Active Substance: LAMOTRIGINE
     Indication: SEIZURE
     Dosage: 200 MG, BID
     Route: 065

REACTIONS (2)
  - Drug ineffective [Recovered/Resolved]
  - Epilepsy [Recovered/Resolved]
